FAERS Safety Report 4534400-6 (Version None)
Quarter: 2004Q4

REPORT INFORMATION
  Report Type: 
  Country: None (occurrence: None)
  Receive Date: 20041221
  Receipt Date: 20041221
  Transmission Date: 20050328
  Serious: Yes (Hospitalization)
  Sender: FDA-Public Use
  Company Number: None

PATIENT
  Sex: Male
  Weight: 73 kg

DRUGS (6)
  1. COUMADIN [Suspect]
     Indication: ATRIAL FIBRILLATION
     Dosage: PO 5MG 3X WEEK 7.5MG 3X WEEK 10MG Q WEEK
     Route: 048
  2. ASPIRIN [Concomitant]
  3. ZOCOR [Concomitant]
  4. HYZAR [Concomitant]
  5. K+ [Concomitant]
  6. VIT. C [Concomitant]

REACTIONS (3)
  - ALCOHOL USE [None]
  - INTERNATIONAL NORMALISED RATIO INCREASED [None]
  - MEDICATION ERROR [None]
